FAERS Safety Report 5717024-4 (Version None)
Quarter: 2008Q2

REPORT INFORMATION
  Report Type: 
  Country: None (occurrence: None)
  Receive Date: 20080424
  Receipt Date: 20080412
  Transmission Date: 20081010
  Serious: Yes (Other)
  Sender: FDA-Public Use
  Company Number: FR-PFIZER INC-2006097570

PATIENT
  Sex: Female
  Weight: 49 kg

DRUGS (12)
  1. LYRICA [Suspect]
     Indication: PAIN
     Route: 048
  2. TRAMADOL HCL [Concomitant]
     Route: 065
  3. PARACETAMOL [Concomitant]
     Route: 065
  4. VENLAFAXINE HYDROCHLORIDE [Concomitant]
     Route: 065
  5. LEVOTHYROXINE SODIUM [Concomitant]
     Route: 065
  6. OXYCODONE HYDROCHLORIDE [Concomitant]
     Route: 065
  7. DIAZEPAM [Concomitant]
     Route: 065
  8. AMITRIPTYLINE HYDROCHLORIDE [Concomitant]
     Route: 065
  9. MEPROBAMATE [Concomitant]
     Route: 065
  10. FENTANYL CITRATE [Concomitant]
  11. BROMAZEPAM [Concomitant]
  12. MORPHINE SULFATE [Concomitant]

REACTIONS (21)
  - AGITATION [None]
  - ARTHRALGIA [None]
  - BACK PAIN [None]
  - BLOOD PRESSURE DECREASED [None]
  - CONDITION AGGRAVATED [None]
  - CONSTIPATION [None]
  - DISTURBANCE IN ATTENTION [None]
  - DIZZINESS [None]
  - INJURY [None]
  - INTENTIONAL DRUG MISUSE [None]
  - IRRITABILITY [None]
  - MENTAL IMPAIRMENT [None]
  - MUSCLE RIGIDITY [None]
  - MUSCLE SPASMS [None]
  - MYALGIA [None]
  - OEDEMA [None]
  - PAIN IN EXTREMITY [None]
  - SOMNOLENCE [None]
  - SPEECH DISORDER [None]
  - VERTIGO [None]
  - WEIGHT INCREASED [None]
